FAERS Safety Report 21498259 (Version 1)
Quarter: 2022Q4

REPORT INFORMATION
  Report Type: Spontaneous
  Country: US (occurrence: None)
  Receive Date: 20221021
  Receipt Date: 20221021
  Transmission Date: 20230113
  Serious: Yes (Death)
  Sender: FDA-Public Use
  Company Number: None

PATIENT
  Age: 75 Year
  Sex: Female
  Weight: 40.37 kg

DRUGS (4)
  1. VERZENIO [Suspect]
     Active Substance: ABEMACICLIB
     Indication: Breast cancer female
     Dosage: FREQUENCY : TWICE A DAY;?
     Route: 048
     Dates: end: 20221019
  2. LETROZOLE [Concomitant]
     Active Substance: LETROZOLE
  3. XGEVA [Concomitant]
     Active Substance: DENOSUMAB
  4. LOVASTATIN [Concomitant]
     Active Substance: LOVASTATIN

REACTIONS (1)
  - Disease progression [None]
